FAERS Safety Report 7640258-9 (Version None)
Quarter: 2011Q3

REPORT INFORMATION
  Report Type: 
  Country: None (occurrence: None)
  Receive Date: 20110728
  Receipt Date: 20080829
  Transmission Date: 20111222
  Serious: Yes (Other)
  Sender: FDA-Public Use
  Company Number: US-BAYER-200832572NA

PATIENT
  Age: 53 Year
  Sex: Male
  Weight: 81.633 kg

DRUGS (18)
  1. TRASYLOL [Suspect]
     Indication: MITRAL VALVE REPLACEMENT
     Dosage: 1 ML, TEST DOSE
     Route: 042
     Dates: start: 20050825, end: 20050825
  2. NEXIUM [Concomitant]
     Dosage: UNK
     Route: 048
     Dates: start: 20040101
  3. LASIX [Concomitant]
     Dosage: 20 MG, UNK
     Route: 042
     Dates: start: 20050825
  4. CRYOPRECIPITATES [Concomitant]
     Dosage: 2 U, UNK
     Route: 042
     Dates: start: 20050825, end: 20050825
  5. PLATELETS [Concomitant]
     Dosage: 5 U, UNK
     Dates: start: 20050825
  6. PAVULON [Concomitant]
     Dosage: UNK
     Route: 042
     Dates: start: 20050825
  7. LIDOCAINE [Concomitant]
     Dosage: 100 MG, UNK
     Route: 042
     Dates: start: 20050825
  8. FRESH FROZEN PLASMA [Concomitant]
     Dosage: 10 U, UNK
     Route: 042
     Dates: start: 20050825, end: 20050825
  9. FENTANYL [Concomitant]
     Dosage: UNK
     Route: 042
     Dates: start: 20050825, end: 20050825
  10. CONTRAST MEDIA [Concomitant]
     Indication: CATHETERISATION CARDIAC
     Dosage: UNK
     Dates: start: 20050813
  11. TRASYLOL [Suspect]
     Dosage: 50 ML/HOUR INFUSION
     Route: 042
     Dates: start: 20050826, end: 20050826
  12. HEPARIN [Concomitant]
     Dosage: 15000 U, BYPASS
     Dates: start: 20050825, end: 20050825
  13. HEPARIN [Concomitant]
     Dosage: UNK
     Route: 042
     Dates: start: 20050825
  14. RED BLOOD CELLS [Concomitant]
     Dosage: 1250 ML, UNK
     Route: 042
     Dates: start: 20050825, end: 20050825
  15. TRASYLOL [Suspect]
     Dosage: 200 ML LOADING DOSE
     Route: 042
     Dates: start: 20050826, end: 20050826
  16. VASOPRESSIN [Concomitant]
     Dosage: UNK
     Route: 042
     Dates: start: 20050825
  17. DIPRIVAN [Concomitant]
     Dosage: UNK
     Route: 042
     Dates: start: 20050825, end: 20050825
  18. PROTAMINE SULFATE [Concomitant]
     Route: 042

REACTIONS (6)
  - INJURY [None]
  - RENAL FAILURE [None]
  - ANXIETY [None]
  - FEAR [None]
  - PAIN [None]
  - DEPRESSION [None]
